FAERS Safety Report 7278048-1 (Version None)
Quarter: 2011Q1

REPORT INFORMATION
  Report Type: 
  Country: None (occurrence: None)
  Receive Date: 20110207
  Receipt Date: 20110126
  Transmission Date: 20110831
  Serious: Yes (Death)
  Sender: FDA-Public Use
  Company Number: IL-ACTELION-A-CH2011-44292

PATIENT
  Age: 40 Year
  Sex: Male

DRUGS (2)
  1. TRACLEER [Suspect]
     Dosage: 125 MG, BID
     Route: 048
     Dates: start: 20101201
  2. SILDENAFIL [Concomitant]

REACTIONS (1)
  - RESPIRATORY FAILURE [None]
